FAERS Safety Report 23576312 (Version 1)
Quarter: 2024Q1

REPORT INFORMATION
  Report Type: Spontaneous
  Country: US (occurrence: None)
  Receive Date: 20240228
  Receipt Date: 20240228
  Transmission Date: 20240410
  Serious: No
  Sender: FDA-Public Use
  Company Number: None

PATIENT
  Age: 73 Year
  Sex: Male

DRUGS (1)
  1. PIRFENIDONE [Suspect]
     Active Substance: PIRFENIDONE
     Indication: Pulmonary fibrosis
     Dosage: 801MG BID ORAL
     Route: 048
     Dates: start: 20221114

REACTIONS (4)
  - Tachypnoea [None]
  - Hypoxia [None]
  - Idiopathic pulmonary fibrosis [None]
  - Condition aggravated [None]

NARRATIVE: CASE EVENT DATE: 20240216
